FAERS Safety Report 14524287 (Version 3)
Quarter: 2019Q4

REPORT INFORMATION
  Report Type: Spontaneous
  Country: US (occurrence: US)
  Receive Date: 20180213
  Receipt Date: 20191030
  Transmission Date: 20200122
  Serious: Yes (Hospitalization)
  Sender: FDA-Public Use
  Company Number: US-PFIZER INC-2018059212

PATIENT
  Age: 34 Year
  Sex: Female
  Weight: 78.5 kg

DRUGS (8)
  1. CALCIUM + D3 [CALCIUM CARBONATE;COLECALCIFEROL] [Concomitant]
     Dosage: UNK  (600 MG-500 TABLET ER)
  2. IMIPRAMINE [Concomitant]
     Active Substance: IMIPRAMINE
     Dosage: 10 MG, UNK
  3. GENOTROPIN MQ [Suspect]
     Active Substance: SOMATROPIN
     Indication: BONE DENSITY ABNORMAL
     Dosage: 0.4 MG, 1X/DAY
     Route: 058
  4. GENOTROPIN MQ [Suspect]
     Active Substance: SOMATROPIN
     Indication: BONE DISORDER
     Dosage: UNK, 1X/DAY [0.4 PREDRAWN MINIQUICK SYRINGE SELF INJECTS IN HER THIGH ONCE A DAY]
  5. PROAIR RESPICLICK [Concomitant]
     Active Substance: ALBUTEROL SULFATE
     Dosage: 90 UG, UNK
  6. FLORASTOR [LACTOBACILLUS ACIDOPHILUS] [Concomitant]
     Dosage: 250 MG, UNK
  7. GENOTROPIN MQ [Suspect]
     Active Substance: SOMATROPIN
     Indication: HYPOPITUITARISM
     Dosage: 0.4 MG, 1X/DAY (ONE INJECTION 6 DAYS OUT OF THE WEEK, NO DOSE ON SUNDAYS)
  8. QVAR REDIHALER [Concomitant]
     Active Substance: BECLOMETHASONE DIPROPIONATE
     Dosage: 40 UG, UNK

REACTIONS (4)
  - Dizziness [Recovered/Resolved]
  - Thyroid mass [Unknown]
  - Blood cholesterol increased [Unknown]
  - Nausea [Recovered/Resolved]

NARRATIVE: CASE EVENT DATE: 20190316
